FAERS Safety Report 11536977 (Version 5)
Quarter: 2015Q4

REPORT INFORMATION
  Report Type: Report from Study
  Country: MX (occurrence: MX)
  Receive Date: 20150922
  Receipt Date: 20151028
  Transmission Date: 20160304
  Serious: Yes (Other)
  Sender: FDA-Public Use
  Company Number: MX-ABBVIE-15P-107-1465748-00

PATIENT
  Age: 71 Year
  Sex: Female
  Weight: 52 kg

DRUGS (2)
  1. VIEKIRAX [Suspect]
     Active Substance: OMBITASVIR\PARITAPREVIR\RITONAVIR
     Indication: HEPATITIS C
     Dosage: 1-0-1
     Route: 048
     Dates: start: 20150902
  2. RIBAVIRINE [Concomitant]
     Active Substance: RIBAVIRIN
     Indication: HEPATITIS C
     Dosage: TWO
     Route: 048
     Dates: start: 20150902

REACTIONS (6)
  - Pruritus generalised [Recovering/Resolving]
  - Disease progression [Recovering/Resolving]
  - Pain in extremity [Recovering/Resolving]
  - Skin exfoliation [Recovering/Resolving]
  - Fatigue [Recovering/Resolving]
  - Acne [Recovering/Resolving]

NARRATIVE: CASE EVENT DATE: 20150911
